FAERS Safety Report 6528742-2 (Version None)
Quarter: 2010Q1

REPORT INFORMATION
  Report Type: 
  Country: None (occurrence: None)
  Receive Date: 20100106
  Receipt Date: 20091218
  Transmission Date: 20100710
  Serious: Yes (Other)
  Sender: FDA-Public Use
  Company Number: JP-ROCHE-677700

PATIENT
  Age: 2 Year
  Sex: Male

DRUGS (1)
  1. TAMIFLU [Suspect]
     Indication: DRUG USE FOR UNKNOWN INDICATION
     Dosage: DRUG NAME: TAMIFLU DRY SYRUP 3%(OSELTAMIVIR)
     Route: 048
     Dates: start: 20091215

REACTIONS (1)
  - ABNORMAL BEHAVIOUR [None]
